FAERS Safety Report 9141129 (Version 1)
Quarter: 2013Q1

REPORT INFORMATION
  Report Type: Spontaneous
  Country: US (occurrence: US)
  Receive Date: 20130305
  Receipt Date: 20130305
  Transmission Date: 20140127
  Serious: No
  Sender: FDA-Public Use
  Company Number: US-009507513-1302USA010479

PATIENT
  Age: 72 Year
  Sex: Female

DRUGS (3)
  1. ZETIA [Suspect]
     Dosage: UNK
     Route: 048
     Dates: start: 20130123, end: 201302
  2. ATORVASTATIN [Concomitant]
  3. ASPIRIN [Concomitant]

REACTIONS (2)
  - Arthralgia [Unknown]
  - Blood creatine phosphokinase increased [Unknown]
